FAERS Safety Report 7299163-2 (Version None)
Quarter: 2011Q1

REPORT INFORMATION
  Report Type: 
  Country: None (occurrence: None)
  Receive Date: 20110217
  Receipt Date: 20110214
  Transmission Date: 20110831
  Serious: Yes (Death)
  Sender: FDA-Public Use
  Company Number: NL-ABBOTT-11P-114-0705256-00

PATIENT
  Sex: Male

DRUGS (6)
  1. MACROGOL/SALTS POWDER [Concomitant]
     Indication: PRODUCT USED FOR UNKNOWN INDICATION
  2. ALFACALCIDOL [Concomitant]
     Indication: PRODUCT USED FOR UNKNOWN INDICATION
  3. LUCRIN DEPOT 30 MG [Suspect]
     Indication: PROSTATE CANCER
     Route: 058
     Dates: start: 20090901, end: 20100901
  4. FERROUS SULFATE TAB [Concomitant]
     Indication: PRODUCT USED FOR UNKNOWN INDICATION
     Dosage: SUSTAINED RELEASE
  5. LUCRIN DEPOT 11.25 MG [Suspect]
     Indication: PROSTATE CANCER
     Route: 058
     Dates: start: 20081001, end: 20090601
  6. ACENOCOUMAROL [Concomitant]
     Indication: PRODUCT USED FOR UNKNOWN INDICATION

REACTIONS (1)
  - DEATH [None]
